FAERS Safety Report 8483640 (Version 7)
Quarter: 2013Q3

REPORT INFORMATION
  Report Type: Report from Study
  Country: AU (occurrence: AU)
  Receive Date: 20120329
  Receipt Date: 20130723
  Transmission Date: 20140515
  Serious: Yes (Hospitalization)
  Sender: FDA-Public Use
  Company Number: AU-ROCHE-802100

PATIENT
  Age: 60 Year
  Sex: Female
  Weight: 73.8 kg

DRUGS (5)
  1. VEMURAFENIB [Suspect]
     Indication: METASTATIC MALIGNANT MELANOMA
     Route: 048
     Dates: start: 20110923, end: 20111002
  2. VEMURAFENIB [Suspect]
     Route: 048
     Dates: start: 20110729, end: 20110830
  3. NORVAS [Concomitant]
     Route: 065
     Dates: start: 200907
  4. ATIVAN [Concomitant]
     Route: 065
     Dates: start: 201105
  5. IBUPROFEN [Concomitant]
     Route: 065
     Dates: start: 20110923

REACTIONS (1)
  - Drug-induced liver injury [Recovered/Resolved]
